FAERS Safety Report 8067529-9 (Version None)
Quarter: 2012Q1

REPORT INFORMATION
  Report Type: 
  Country: None (occurrence: None)
  Receive Date: 20120124
  Receipt Date: 20120109
  Transmission Date: 20120608
  Serious: No
  Sender: FDA-Public Use
  Company Number: US-B.I. PHARMACEUTICALS,INC./RIDGEFIELD-2012-BP-00450BP

PATIENT
  Sex: Male

DRUGS (5)
  1. SIMVASTATIN [Concomitant]
     Indication: BLOOD CHOLESTEROL INCREASED
     Dosage: 20 MG
     Route: 048
  2. PRADAXA [Suspect]
     Indication: ATRIAL FIBRILLATION
     Dosage: 300 MG
     Route: 048
     Dates: start: 20101101
  3. DILTIAZEM [Concomitant]
     Indication: BLOOD CHOLESTEROL INCREASED
     Dosage: 120 MG
     Route: 048
  4. NEXIUM [Concomitant]
     Indication: GASTRIC DISORDER
     Dosage: 40 MG
     Route: 048
  5. NIACIN [Concomitant]
     Indication: PROPHYLAXIS
     Dosage: 500 MG
     Route: 048

REACTIONS (4)
  - FLATULENCE [None]
  - NAUSEA [None]
  - ABDOMINAL PAIN [None]
  - DYSPEPSIA [None]
